FAERS Safety Report 19292210 (Version 3)
Quarter: 2021Q2

REPORT INFORMATION
  Report Type: Report from Study
  Country: JP (occurrence: JP)
  Receive Date: 20210524
  Receipt Date: 20210611
  Transmission Date: 20210717
  Serious: Yes (Hospitalization)
  Sender: FDA-Public Use
  Company Number: JP-CELLTRION INC.-2021JP006881

PATIENT

DRUGS (5)
  1. TRASTUZUMAB BS FOR I.V. INFUSION [NK] [Suspect]
     Active Substance: TRASTUZUMAB
     Indication: GASTRIC CANCER
     Dosage: 423 MILLIGRAM, QD
     Route: 041
     Dates: start: 20210512
  2. NKS?1 COMBINATION CAPSULE T25 [Suspect]
     Active Substance: GIMERACIL\OTERACIL\TEGAFUR
     Indication: GASTRIC CANCER
     Dosage: 120 MILLIGRAM, QD
     Route: 048
     Dates: start: 20210512
  3. NKS?1 COMBINATION CAPSULE T25 [Suspect]
     Active Substance: GIMERACIL\OTERACIL\TEGAFUR
     Dosage: 100 MILLIGRAM, QD
     Route: 048
  4. OXALIPLATIN I.V. INFUSION SOLUTION [NK] [Suspect]
     Active Substance: OXALIPLATIN
     Indication: GASTRIC CANCER
     Dosage: 198.51 MILLIGRAM, QD
     Route: 041
     Dates: start: 20210512
  5. AMLODIN OD [Concomitant]
     Active Substance: AMLODIPINE BESYLATE
     Indication: HYPERTENSION

REACTIONS (3)
  - Fatigue [Recovering/Resolving]
  - Decreased appetite [Recovering/Resolving]
  - Underdose [Unknown]

NARRATIVE: CASE EVENT DATE: 20210513
